FAERS Safety Report 16237205 (Version 3)
Quarter: 2019Q2

REPORT INFORMATION
  Report Type: Spontaneous
  Country: IT (occurrence: IT)
  Receive Date: 20190425
  Receipt Date: 20190520
  Transmission Date: 20190711
  Serious: Yes (Other)
  Sender: FDA-Public Use
  Company Number: IT-ACCORD-124012

PATIENT
  Age: 55 Year
  Sex: Male
  Weight: 54 kg

DRUGS (4)
  1. FLUOROURACIL. [Suspect]
     Active Substance: FLUOROURACIL
     Indication: GASTRIC CANCER
     Dosage: ALSO 450 MG RECEIVED BY INTRAVENOUS BOLUS FROM 12-FEB-2019 TO 18-FEB-2019
     Route: 041
     Dates: start: 20190212, end: 20190218
  2. RANITIDINE. [Concomitant]
     Active Substance: RANITIDINE
  3. OXALIPLATIN. [Suspect]
     Active Substance: OXALIPLATIN
     Indication: GASTRIC CANCER
     Route: 042
     Dates: start: 20190212, end: 20190218
  4. DEXAMETHASONE. [Concomitant]
     Active Substance: DEXAMETHASONE

REACTIONS (3)
  - Off label use [Unknown]
  - Blood iron decreased [Recovering/Resolving]
  - Anaemia [Recovering/Resolving]

NARRATIVE: CASE EVENT DATE: 20190228
